FAERS Safety Report 20455267 (Version 5)
Quarter: 2022Q3

REPORT INFORMATION
  Report Type: Report from Study
  Country: DE (occurrence: DE)
  Receive Date: 20220210
  Receipt Date: 20220919
  Transmission Date: 20221026
  Serious: Yes (Hospitalization, Other)
  Sender: FDA-Public Use
  Company Number: DE-SHIRE-DE202020429

PATIENT
  Age: 61 Year
  Sex: Male
  Weight: 61 kg

DRUGS (45)
  1. TEDUGLUTIDE [Suspect]
     Active Substance: TEDUGLUTIDE
     Indication: Short-bowel syndrome
     Dosage: 3.1 MILLIGRAM, QD
     Route: 042
     Dates: start: 20170504, end: 20200729
  2. TEDUGLUTIDE [Suspect]
     Active Substance: TEDUGLUTIDE
     Indication: Short-bowel syndrome
     Dosage: 3.1 MILLIGRAM, QD
     Route: 042
     Dates: start: 20170504, end: 20200729
  3. TEDUGLUTIDE [Suspect]
     Active Substance: TEDUGLUTIDE
     Indication: Short-bowel syndrome
     Dosage: 3.1 MILLIGRAM, QD
     Route: 042
     Dates: start: 20170504, end: 20200729
  4. TEDUGLUTIDE [Suspect]
     Active Substance: TEDUGLUTIDE
     Indication: Short-bowel syndrome
     Dosage: 3.1 MILLIGRAM, QD
     Route: 042
     Dates: start: 20170504, end: 20200729
  5. AMPHOTERICIN B [Concomitant]
     Active Substance: AMPHOTERICIN B
     Indication: Oesophageal candidiasis
     Dosage: 50 GRAM, TID
     Route: 061
     Dates: start: 20200701
  6. DERMOXIN [CLOBETASOL PROPIONATE] [Concomitant]
     Indication: Pemphigoid
     Dosage: UNK
     Route: 061
     Dates: start: 202003
  7. IRON [Concomitant]
     Active Substance: IRON
     Indication: Normochromic normocytic anaemia
     Dosage: UNK
     Route: 042
     Dates: start: 202007, end: 202008
  8. FOLIC ACID [Concomitant]
     Active Substance: FOLIC ACID
     Indication: Normochromic normocytic anaemia
     Dosage: UNK
     Route: 048
     Dates: start: 202007, end: 202008
  9. DOXYCYCLINE [Concomitant]
     Active Substance: DOXYCYCLINE
     Indication: Pemphigoid
     Dosage: 200 MILLIGRAM, QD
     Route: 048
     Dates: start: 20200615
  10. CEFEPIME HYDROCHLORIDE [Concomitant]
     Active Substance: CEFEPIME HYDROCHLORIDE
     Indication: Device related sepsis
     Dosage: 2.38 GRAM, TID
     Route: 048
     Dates: start: 20200623, end: 20200804
  11. PANTOPRAZOLE SODIUM [Concomitant]
     Active Substance: PANTOPRAZOLE SODIUM
     Indication: Prophylaxis
     Dosage: 40 MILLIGRAM, QD
     Route: 048
  12. Mucofalk [Concomitant]
     Indication: Antidiarrhoeal supportive care
     Dosage: 1 INTERNATIONAL UNIT, TID
     Route: 048
     Dates: end: 2018
  13. OMNIFLORA [Concomitant]
     Indication: Prophylaxis
     Dosage: 2 INTERNATIONAL UNIT, TID
     Route: 048
     Dates: end: 2018
  14. LOPERAMIDE [Concomitant]
     Active Substance: LOPERAMIDE
     Indication: Diarrhoea
     Dosage: 2 MILLIGRAM, QD
     Route: 048
  15. METOPROLOL [Concomitant]
     Active Substance: METOPROLOL
     Indication: Hypertension
     Dosage: 47.5 MILLIGRAM, BID
     Route: 048
     Dates: end: 20160629
  16. METOPROLOL [Concomitant]
     Active Substance: METOPROLOL
     Dosage: 24 MILLIGRAM, BID
     Route: 048
     Dates: start: 20160629, end: 2016
  17. CORTISONE ACETATE [Concomitant]
     Active Substance: CORTISONE ACETATE
     Indication: Prophylaxis
     Dosage: UNK
     Route: 048
     Dates: end: 201612
  18. LEVOCETIRIZINE DIHYDROCHLORIDE [Concomitant]
     Active Substance: LEVOCETIRIZINE DIHYDROCHLORIDE
     Dosage: 5 MILLIGRAM, BID
     Route: 048
  19. FLUCONAZOLE [Concomitant]
     Active Substance: FLUCONAZOLE
     Indication: Oesophageal candidiasis
     Dosage: 200 MILLIGRAM, QD
     Route: 048
     Dates: start: 20170313, end: 20170326
  20. FLUCONAZOLE [Concomitant]
     Active Substance: FLUCONAZOLE
     Dosage: 200 MILLIGRAM
     Route: 042
     Dates: start: 202006, end: 20200701
  21. ZOFRAN [Concomitant]
     Active Substance: ONDANSETRON HYDROCHLORIDE
     Indication: Nausea
     Dosage: 8 MILLIGRAM, QD
     Route: 060
     Dates: start: 20170313, end: 20170313
  22. NITROFURANTOIN [Concomitant]
     Active Substance: NITROFURANTOIN
     Indication: Urinary tract infection
     Dosage: UNK
     Route: 065
     Dates: start: 201705, end: 201705
  23. LORATADINE [Concomitant]
     Active Substance: LORATADINE
     Indication: Prurigo
     Dosage: 5 MILLIGRAM, BID
     Route: 048
     Dates: start: 201801, end: 201801
  24. Optiderm [Concomitant]
     Indication: Prurigo
     Dosage: UNK
     Route: 061
     Dates: start: 201801, end: 201801
  25. LORATADINE [Concomitant]
     Active Substance: LORATADINE
     Dosage: UNK
     Route: 065
     Dates: start: 201805
  26. SELENIUM [Concomitant]
     Active Substance: SELENIUM
     Indication: Selenium deficiency
     Dosage: UNK
     Route: 048
  27. VITAMIN D [Concomitant]
     Active Substance: VITAMIN D NOS
     Indication: Vitamin D deficiency
     Dosage: UNK
     Route: 048
  28. METRONIDAZOLE [Concomitant]
     Active Substance: METRONIDAZOLE
     Indication: Antibiotic therapy
     Dosage: UNK
     Route: 065
     Dates: start: 201812, end: 201812
  29. CEFUROXIME [Concomitant]
     Active Substance: CEFUROXIME
     Indication: Antibiotic therapy
     Dosage: UNK
     Route: 065
     Dates: start: 201812, end: 201812
  30. PREDNISOLONE [Concomitant]
     Active Substance: PREDNISOLONE
     Indication: Pemphigoid
     Dosage: 20 MILLIGRAM
     Route: 065
     Dates: start: 201904, end: 201907
  31. PREDNISOLONE [Concomitant]
     Active Substance: PREDNISOLONE
     Dosage: 20 MILLIGRAM, QD
     Route: 065
     Dates: start: 2020
  32. METHOTREXATE [Concomitant]
     Active Substance: METHOTREXATE
     Indication: Pemphigoid
     Dosage: 10 MILLIGRAM, 1/WEEK
     Route: 058
     Dates: start: 201904
  33. CASPOFUNGIN [Concomitant]
     Active Substance: CASPOFUNGIN
     Indication: Pemphigoid
     Dosage: UNK
     Route: 058
     Dates: start: 202003
  34. PIPERACILLIN [Concomitant]
     Active Substance: PIPERACILLIN
     Indication: Peritonitis
     Dosage: UNK
     Route: 065
     Dates: start: 202003, end: 20200403
  35. TAZOBACTAM [Concomitant]
     Active Substance: TAZOBACTAM
     Indication: Peritonitis
     Dosage: UNK
     Route: 065
     Dates: start: 202003, end: 20200403
  36. Dermoxin [Concomitant]
     Indication: Pemphigoid
     Dosage: UNK
     Route: 065
     Dates: start: 202003
  37. AMPHOTERICIN B [Concomitant]
     Active Substance: AMPHOTERICIN B
     Indication: Oesophageal candidiasis
     Dosage: 500 MILLIGRAM, TID
     Route: 061
     Dates: start: 20200701
  38. MEROPENEM [Concomitant]
     Active Substance: MEROPENEM
     Indication: Device related sepsis
     Dosage: UNK
     Route: 065
     Dates: start: 20200722, end: 20200723
  39. VANCOMYCIN [Concomitant]
     Active Substance: VANCOMYCIN
     Indication: Device related sepsis
     Dosage: 855 MILLIGRAM, TID
     Route: 042
     Dates: start: 20200722, end: 20200804
  40. CEFEPIME HYDROCHLORIDE [Concomitant]
     Active Substance: CEFEPIME HYDROCHLORIDE
     Indication: Device related sepsis
     Dosage: 2.38 GRAM, TID
     Route: 048
     Dates: start: 20200723, end: 20200804
  41. DOXYCYCLINE [Concomitant]
     Active Substance: DOXYCYCLINE
     Indication: Pemphigoid
     Dosage: 200 MILLIGRAM, QD
     Route: 048
     Dates: start: 20200615
  42. FOLIC ACID [Concomitant]
     Active Substance: FOLIC ACID
     Indication: Normochromic normocytic anaemia
     Dosage: UNK
     Route: 048
     Dates: start: 202007, end: 202008
  43. IRON [Concomitant]
     Active Substance: IRON
     Indication: Normochromic normocytic anaemia
     Dosage: UNK
     Route: 042
     Dates: start: 202007, end: 202008
  44. ASPIRIN [Concomitant]
     Active Substance: ASPIRIN
     Indication: Cerebrovascular accident
     Dosage: 100 MILLIGRAM, QD
     Route: 048
     Dates: start: 202006
  45. Fuconazole [Concomitant]
     Indication: Peritonitis
     Dosage: UNK
     Route: 065
     Dates: start: 202003, end: 20200403

REACTIONS (8)
  - Pyrexia [Recovered/Resolved]
  - Cerebrovascular accident [Recovered/Resolved]
  - Device related sepsis [Recovered/Resolved]
  - Acute coronary syndrome [Recovered/Resolved]
  - Oesophageal candidiasis [Not Recovered/Not Resolved]
  - Chronic kidney disease [Not Recovered/Not Resolved]
  - Normochromic normocytic anaemia [Not Recovered/Not Resolved]
  - Hyponatraemia [Recovered/Resolved]

NARRATIVE: CASE EVENT DATE: 20200601
